FAERS Safety Report 20974542 (Version 1)
Quarter: 2022Q2

REPORT INFORMATION
  Report Type: Spontaneous
  Country: JP (occurrence: JP)
  Receive Date: 20220617
  Receipt Date: 20220617
  Transmission Date: 20220721
  Serious: Yes (Death, Other)
  Sender: FDA-Public Use
  Company Number: JP-ASTELLAS-2022JP009069

PATIENT
  Age: 83 Year
  Sex: Male

DRUGS (2)
  1. PADCEV [Suspect]
     Active Substance: ENFORTUMAB VEDOTIN-EJFV
     Indication: Bladder cancer
     Route: 041
     Dates: start: 20220127
  2. PADCEV [Suspect]
     Active Substance: ENFORTUMAB VEDOTIN-EJFV
     Dosage: UNK UNK, UNKNOWN FREQ.
     Route: 042
     Dates: start: 20220210

REACTIONS (7)
  - Bladder cancer [Fatal]
  - Malignant neoplasm progression [Fatal]
  - Lymphoma [Fatal]
  - Pneumonia [Recovering/Resolving]
  - Pyrexia [Recovered/Resolved]
  - Urinary tract infection [Recovering/Resolving]
  - Taste disorder [Not Recovered/Not Resolved]

NARRATIVE: CASE EVENT DATE: 20220608
